FAERS Safety Report 18734611 (Version 1)
Quarter: 2021Q1

REPORT INFORMATION
  Report Type: Spontaneous
  Country: US (occurrence: US)
  Receive Date: 20210113
  Receipt Date: 20210113
  Transmission Date: 20210419
  Serious: No
  Sender: FDA-Public Use
  Company Number: US-GLAXOSMITHKLINE-US2021AMR007324

PATIENT
  Age: 66 Year
  Sex: Female

DRUGS (1)
  1. ZEJULA [Suspect]
     Active Substance: NIRAPARIB
     Indication: NEOPLASM MALIGNANT
     Dosage: 300 MG, QD
     Dates: start: 20210101

REACTIONS (7)
  - Poor quality sleep [Unknown]
  - Productive cough [Unknown]
  - Arthralgia [Unknown]
  - Skin discolouration [Unknown]
  - Cough [Unknown]
  - Clumsiness [Unknown]
  - Dizziness [Unknown]

NARRATIVE: CASE EVENT DATE: 202101
